FAERS Safety Report 10268371 (Version 1)
Quarter: 2014Q2

REPORT INFORMATION
  Report Type: Spontaneous
  Country: US (occurrence: US)
  Receive Date: 20140630
  Receipt Date: 20140630
  Transmission Date: 20141212
  Serious: No
  Sender: FDA-Public Use
  Company Number: US-009507513-1406USA011740

PATIENT
  Age: 26 Year
  Sex: Female

DRUGS (5)
  1. IMPLANON [Suspect]
     Indication: CONTRACEPTION
     Dosage: ONE IMPLANT ROD
     Route: 059
     Dates: start: 20131223
  2. EFFEXOR [Concomitant]
  3. LAMICTAL [Concomitant]
  4. TRAZODONE HYDROCHLORIDE [Concomitant]
  5. ABILIFY [Concomitant]

REACTIONS (1)
  - Adverse event [Unknown]
